FAERS Safety Report 20612533 (Version 1)
Quarter: 2022Q1

REPORT INFORMATION
  Report Type: Spontaneous
  Country: BE (occurrence: None)
  Receive Date: 20220318
  Receipt Date: 20220318
  Transmission Date: 20220423
  Serious: Yes (Other)
  Sender: FDA-Public Use
  Company Number: 2022A113320

PATIENT
  Age: 62 Year
  Sex: Male

DRUGS (3)
  1. TAGRISSO [Suspect]
     Active Substance: OSIMERTINIB
     Indication: Metastases to meninges
     Dosage: 160.0MG UNKNOWN
     Route: 048
     Dates: start: 202109
  2. SACUBITRIL [Concomitant]
     Active Substance: SACUBITRIL
     Dosage: 24MG
  3. VALSARTAN [Concomitant]
     Active Substance: VALSARTAN
     Dosage: 26 MG

REACTIONS (3)
  - Cardiac failure [Unknown]
  - Myocarditis [Unknown]
  - Atrial fibrillation [Unknown]

NARRATIVE: CASE EVENT DATE: 20210101
